FAERS Safety Report 15244986 (Version 1)
Quarter: 2018Q3

REPORT INFORMATION
  Report Type: Spontaneous
  Country: US (occurrence: US)
  Receive Date: 20180806
  Receipt Date: 20180806
  Transmission Date: 20181010
  Serious: Yes (Other)
  Sender: FDA-Public Use
  Company Number: US-PURDUE PHARMA-USA-2018-0144377

PATIENT
  Age: 65 Year
  Sex: Male

DRUGS (2)
  1. BUTRANS [Suspect]
     Active Substance: BUPRENORPHINE
     Indication: PAIN
     Dosage: 5 MCG/HR, WEEKLY
     Route: 062
     Dates: start: 20180731, end: 20180802
  2. BUTRANS [Suspect]
     Active Substance: BUPRENORPHINE
     Dosage: 5 MCG/HR, WEEKLY
     Route: 062
     Dates: start: 2017

REACTIONS (3)
  - Application site burn [Not Recovered/Not Resolved]
  - Application site necrosis [Not Recovered/Not Resolved]
  - Application site odour [Not Recovered/Not Resolved]

NARRATIVE: CASE EVENT DATE: 20180802
